FAERS Safety Report 4510978-3 (Version None)
Quarter: 2004Q3

REPORT INFORMATION
  Report Type: 
  Country: None (occurrence: None)
  Receive Date: 20040928
  Receipt Date: 20040810
  Transmission Date: 20050211
  Serious: Yes (Hospitalization)
  Sender: FDA-Public Use
  Company Number: 04P-163-0269998-00

PATIENT
  Age: 49 Year
  Sex: Female
  Weight: 61.2356 kg

DRUGS (4)
  1. HUMIRA [Suspect]
     Indication: RHEUMATOID ARTHRITIS
     Dosage: 40 MG, 2 IN 1 M, SUBCUTANEOUS
     Route: 058
     Dates: start: 20040611
  2. RANITIDINE HYDROCHLORIDE [Concomitant]
  3. TRAMADOL HCL [Concomitant]
  4. OXYCOCET [Concomitant]

REACTIONS (2)
  - CHOLELITHIASIS [None]
  - VOMITING [None]
